FAERS Safety Report 8244429-2 (Version None)
Quarter: 2012Q1

REPORT INFORMATION
  Report Type: 
  Country: None (occurrence: None)
  Receive Date: 20120329
  Receipt Date: 20120323
  Transmission Date: 20120608
  Serious: Yes (Other)
  Sender: FDA-Public Use
  Company Number: US-BAYER-2012-030217

PATIENT
  Age: 41 Year
  Sex: Female
  Weight: 81.8 kg

DRUGS (17)
  1. TRASYLOL [Suspect]
     Dosage: INITIAL DOSE 6 MILLION UNITS
     Dates: start: 20051101
  2. NORVASC [Concomitant]
  3. HEPARIN [Concomitant]
     Dosage: UNK
     Dates: start: 20051101, end: 20051101
  4. ALBUTEROL [Concomitant]
  5. LASIX [Concomitant]
     Dosage: 40 MG, UNK
     Dates: start: 20051101, end: 20051101
  6. SOLU-MEDROL [Concomitant]
     Dosage: 1 G, UNK
     Dates: start: 20051101, end: 20051101
  7. BENADRYL [Concomitant]
     Dosage: UNK
     Dates: start: 20051101, end: 20051101
  8. PLATELETS [Concomitant]
     Dosage: 2 U, UNK
     Dates: start: 20051101
  9. DDAVP [Concomitant]
  10. PROTAMINE SULFATE [Concomitant]
     Dosage: UNK
     Dates: start: 20051101, end: 20051101
  11. ANCEF [Concomitant]
     Dosage: 1 G, UNK
     Dates: start: 20051101, end: 20051101
  12. RED BLOOD CELLS [Concomitant]
     Dosage: 6 U, UNK
     Dates: start: 20051101
  13. CRYOPRECIPITATES [Concomitant]
     Dosage: 2640 ML, UNK
     Dates: start: 20051101
  14. TRASYLOL [Suspect]
     Indication: AORTIC DISSECTION
     Dosage: 200 ML LOAD FOLLOWED BY 50 ML/HR CONTINUOUS
     Dates: start: 20051101
  15. VERSED [Concomitant]
     Dosage: UNK
     Dates: start: 20051101, end: 20051101
  16. PAVULON [Concomitant]
     Dosage: UNK
     Dates: start: 20051101, end: 20051101
  17. PLASMA [Concomitant]
     Dosage: 6 U, UNK
     Dates: start: 20051101

REACTIONS (2)
  - RENAL FAILURE ACUTE [None]
  - ISCHAEMIC HEPATITIS [None]
